FAERS Safety Report 11177195 (Version 1)
Quarter: 2015Q2

REPORT INFORMATION
  Report Type: Spontaneous
  Country: US (occurrence: None)
  Receive Date: 20150609
  Receipt Date: 20150609
  Transmission Date: 20150821
  Serious: Yes (Life-Threatening, Hospitalization)
  Sender: FDA-Public Use
  Company Number: None

PATIENT
  Age: 67 Year
  Sex: Male

DRUGS (1)
  1. WARFARIN [Suspect]
     Active Substance: WARFARIN
     Indication: DEEP VEIN THROMBOSIS
     Route: 048
     Dates: start: 20141117, end: 20141118

REACTIONS (4)
  - Gastrointestinal haemorrhage [None]
  - Gastric ulcer haemorrhage [None]
  - Jaundice cholestatic [None]
  - Refusal of treatment by patient [None]

NARRATIVE: CASE EVENT DATE: 20141117
